FAERS Safety Report 9856702 (Version 3)
Quarter: 2014Q2

REPORT INFORMATION
  Report Type: Spontaneous
  Country: US (occurrence: US)
  Receive Date: 20140130
  Receipt Date: 20140603
  Transmission Date: 20141212
  Serious: Yes (Other)
  Sender: FDA-Public Use
  Company Number: US-GLAXOSMITHKLINE-A1058785A

PATIENT
  Age: 57 Year
  Sex: Female

DRUGS (1)
  1. ARIXTRA [Suspect]
     Indication: THROMBOSIS
     Dosage: 7.5MG UNKNOWN
     Route: 058
     Dates: start: 20120328

REACTIONS (2)
  - Knee arthroplasty [Unknown]
  - Fall [Unknown]
